FAERS Safety Report 14491359 (Version 1)
Quarter: 2018Q1

REPORT INFORMATION
  Report Type: Spontaneous
  Country: US (occurrence: US)
  Receive Date: 20180206
  Receipt Date: 20180206
  Transmission Date: 20180509
  Serious: Yes (Other)
  Sender: FDA-Public Use
  Company Number: PHEH2018US003903

PATIENT
  Sex: Male
  Weight: 70.3 kg

DRUGS (3)
  1. BUDESONIDE. [Suspect]
     Active Substance: BUDESONIDE
     Indication: UPPER RESPIRATORY TRACT CONGESTION
  2. BUDESONIDE. [Suspect]
     Active Substance: BUDESONIDE
     Indication: UPPER RESPIRATORY TRACT INFLAMMATION
     Dosage: 1 DF, QD
     Route: 055
  3. SIMVASTATIN. [Concomitant]
     Active Substance: SIMVASTATIN
     Indication: BLOOD CHOLESTEROL
     Dosage: 20 MG, QD
     Route: 065

REACTIONS (3)
  - Peripheral coldness [Recovered/Resolved]
  - Paraesthesia [Recovered/Resolved]
  - Hypoacusis [Recovered/Resolved]
